FAERS Safety Report 8822700 (Version 3)
Quarter: 2012Q4

REPORT INFORMATION
  Report Type: 
  Country: BR (occurrence: BR)
  Receive Date: 20121003
  Receipt Date: 20121029
  Transmission Date: 20130627
  Serious: Yes (Other)
  Sender: FDA-Public Use
  Company Number: BR-BRISTOL-MYERS SQUIBB COMPANY-17010307

PATIENT
  Sex: Male

DRUGS (5)
  1. APROZIDE [Suspect]
  2. OS-CAL [Concomitant]
  3. SIMVASTATIN [Concomitant]
  4. AMLODIPINE BESYLATE [Concomitant]
  5. VITAMIN B COMPLEX [Concomitant]

REACTIONS (2)
  - Haemodialysis [Not Recovered/Not Resolved]
  - Adverse event [Unknown]
